FAERS Safety Report 15761769 (Version 1)
Quarter: 2018Q4

REPORT INFORMATION
  Report Type: Spontaneous
  Country: US (occurrence: US)
  Receive Date: 20181226
  Receipt Date: 20181226
  Transmission Date: 20190205
  Serious: Yes (Other)
  Sender: FDA-Public Use
  Company Number: None

PATIENT
  Age: 60 Year
  Sex: Female
  Weight: 34.93 kg

DRUGS (17)
  1. AROMASIN [Concomitant]
     Active Substance: EXEMESTANE
  2. XANAX [Concomitant]
     Active Substance: ALPRAZOLAM
  3. FASLODEX [Concomitant]
     Active Substance: FULVESTRANT
  4. REMERON [Concomitant]
     Active Substance: MIRTAZAPINE
  5. VITAMIN D2 [Concomitant]
     Active Substance: ERGOCALCIFEROL
  6. IBRANCE [Suspect]
     Active Substance: PALBOCICLIB
     Indication: OESTROGEN RECEPTOR ASSAY POSITIVE
     Route: 048
     Dates: start: 20181130
  7. CLOBETASOL [Concomitant]
     Active Substance: CLOBETASOL
  8. MEGACE [Concomitant]
     Active Substance: MEGESTROL ACETATE
  9. ZOMETA [Concomitant]
     Active Substance: ZOLEDRONIC ACID
  10. TRIAMCINOLONE [Concomitant]
     Active Substance: TRIAMCINOLONE
  11. ESCITALOPRAM [Concomitant]
     Active Substance: ESCITALOPRAM OXALATE
  12. MEGESTROL [Concomitant]
     Active Substance: MEGESTROL
  13. ZOFRAN [Concomitant]
     Active Substance: ONDANSETRON HYDROCHLORIDE
  14. CLONAZEPAM. [Concomitant]
     Active Substance: CLONAZEPAM
  15. POTASSIUM CHLORIDE. [Concomitant]
     Active Substance: POTASSIUM CHLORIDE
  16. VITAMIN B12 [Concomitant]
     Active Substance: CYANOCOBALAMIN
  17. VITAMIN D3 [Concomitant]
     Active Substance: CHOLECALCIFEROL

REACTIONS (2)
  - Diarrhoea [None]
  - Drug intolerance [None]
